FAERS Safety Report 25039613 (Version 1)
Quarter: 2025Q1

REPORT INFORMATION
  Report Type: Other
  Country: FR (occurrence: FR)
  Receive Date: 20250305
  Receipt Date: 20250305
  Transmission Date: 20250409
  Serious: Yes (Death)
  Sender: ZYDUS PHARM
  Company Number: None

PATIENT

DRUGS (2)
  1. DULOXETINE [Suspect]
     Active Substance: DULOXETINE
     Indication: Depression
     Route: 048
     Dates: start: 20241220, end: 20241221
  2. DULOXETINE [Suspect]
     Active Substance: DULOXETINE
     Route: 048
     Dates: start: 20241210, end: 20241219

REACTIONS (1)
  - Malaise [Fatal]

NARRATIVE: CASE EVENT DATE: 20241221
